FAERS Safety Report 6338414-5 (Version None)
Quarter: 2009Q3

REPORT INFORMATION
  Report Type: 
  Country: None (occurrence: None)
  Receive Date: 20090901
  Receipt Date: 20090817
  Transmission Date: 20100115
  Serious: Yes (Hospitalization)
  Sender: FDA-Public Use
  Company Number: 2009AL001189

PATIENT
  Age: 71 Year
  Sex: Male

DRUGS (41)
  1. DIGOXIN [Suspect]
     Dosage: 0.125MG, DAILY PO
     Route: 048
  2. LASIX [Concomitant]
  3. ASPIRIN [Concomitant]
  4. ZAROXOLYN [Concomitant]
  5. CORDARONE [Concomitant]
  6. PRILOSEC [Concomitant]
  7. LOTENSIN [Concomitant]
  8. VYTORIN [Concomitant]
  9. POTASSIUM CHLORIDE [Concomitant]
  10. METOPROLOL TARTRATE [Concomitant]
  11. FLOMAX [Concomitant]
  12. COUMADIN [Concomitant]
  13. PLAVIX [Concomitant]
  14. AMIODARONE HCL [Concomitant]
  15. FERROUS SULFATE TAB [Concomitant]
  16. ZETIA [Concomitant]
  17. ACCUPRIL [Concomitant]
  18. ZOCOR [Concomitant]
  19. VISICOL [Concomitant]
  20. PROTONIX [Concomitant]
  21. NIASPAN [Concomitant]
  22. HEMOCYTE [Concomitant]
  23. QUINAPRIL [Concomitant]
  24. CLOPIDOGREL [Concomitant]
  25. BENAZEPRIL HYDROCHLORIDE [Concomitant]
  26. FUROSEMIDE [Concomitant]
  27. HEMOCYTE-PLUS [Concomitant]
  28. HYDRO/APAP [Concomitant]
  29. AMOX/CLAVUL [Concomitant]
  30. M-END REFORMULA [Concomitant]
  31. OXYCOD/APAP [Concomitant]
  32. PROPOXY/APAP [Concomitant]
  33. NORVASC [Concomitant]
  34. MUPIROCIN [Concomitant]
  35. TRAZODONE HCL [Concomitant]
  36. PREVPAC [Concomitant]
  37. PHOSLO [Concomitant]
  38. VITAMIN D [Concomitant]
  39. AVELOX [Concomitant]
  40. COUMADIN [Concomitant]
  41. METOLAZONE [Concomitant]

REACTIONS (35)
  - ANAEMIA [None]
  - ANXIETY [None]
  - AORTIC STENOSIS [None]
  - ASTHENIA [None]
  - BRADYCARDIA [None]
  - CARDIAC FAILURE CONGESTIVE [None]
  - CELLULITIS [None]
  - CEREBROVASCULAR DISORDER [None]
  - CHEST DISCOMFORT [None]
  - CHEST PAIN [None]
  - CONFUSIONAL STATE [None]
  - DECREASED ACTIVITY [None]
  - DYSPNOEA [None]
  - ECONOMIC PROBLEM [None]
  - FEAR [None]
  - GASTROINTESTINAL HAEMORRHAGE [None]
  - HAEMATOMA [None]
  - HYPERCHOLESTEROLAEMIA [None]
  - HYPERTENSION [None]
  - HYPOTENSION [None]
  - HYPOXIA [None]
  - ILL-DEFINED DISORDER [None]
  - LEUKOCYTOSIS [None]
  - MYOCARDIAL INFARCTION [None]
  - OEDEMA PERIPHERAL [None]
  - PAIN [None]
  - PAIN IN EXTREMITY [None]
  - PALLOR [None]
  - PNEUMONIA [None]
  - RESPIRATORY FAILURE [None]
  - SUFFOCATION FEELING [None]
  - SYNCOPE [None]
  - TACHYCARDIA [None]
  - UNRESPONSIVE TO STIMULI [None]
  - WOUND [None]
